FAERS Safety Report 4570067-9 (Version None)
Quarter: 2005Q1

REPORT INFORMATION
  Report Type: 
  Country: None (occurrence: None)
  Receive Date: 20050204
  Receipt Date: 20041217
  Transmission Date: 20050727
  Serious: Yes (Hospitalization)
  Sender: FDA-Public Use
  Company Number: 200414755FR

PATIENT
  Age: 72 Year
  Sex: Female

DRUGS (12)
  1. ARAVA [Suspect]
     Indication: RHEUMATOID ARTHRITIS
     Route: 048
     Dates: start: 20031001, end: 20041216
  2. CORTANCYL [Concomitant]
     Dosage: DOSE: 15-0-0
     Route: 048
  3. LASILIX [Concomitant]
     Dosage: DOSE: 20-0-0
     Route: 048
  4. IXPRIM [Concomitant]
     Dosage: DOSE: 2-2-2; DOSE UNIT: UNITS
     Route: 048
  5. RAMIPRIL [Concomitant]
     Dosage: DOSE: 1.25-0-0
     Route: 048
  6. NEXIUM [Concomitant]
     Dosage: DOSE: 0-0-20
     Route: 048
  7. DIFFU K [Concomitant]
     Dosage: DOSE: 600-0-600
     Route: 048
  8. NITRIDERM TTS [Concomitant]
     Route: 062
  9. SINTROM [Concomitant]
     Route: 048
  10. ISOPTIN [Concomitant]
     Indication: SUPRAVENTRICULAR TACHYCARDIA
     Dosage: DOSE: 120-0-120
     Route: 048
  11. LEXOMIL [Concomitant]
     Dosage: DOSE: 0-0-1.5
     Route: 048
  12. ATARAX [Concomitant]
     Dosage: DOSE: 25-0-50
     Route: 048

REACTIONS (11)
  - BACK PAIN [None]
  - CHILLS [None]
  - DISEASE RECURRENCE [None]
  - DRUG TOLERANCE DECREASED [None]
  - DYSPNOEA [None]
  - LUNG CREPITATION [None]
  - PRODUCTIVE COUGH [None]
  - PYREXIA [None]
  - RALES [None]
  - RESPIRATORY FAILURE [None]
  - SIGMOIDITIS [None]
